FAERS Safety Report 23201319 (Version 2)
Quarter: 2023Q4

REPORT INFORMATION
  Report Type: Other
  Country: US (occurrence: US)
  Receive Date: 20231118
  Receipt Date: 20231122
  Transmission Date: 20240109
  Serious: No
  Sender: FDA-Public Use
  Company Number: US-TRAVERE-2023TVT00554

PATIENT
  Age: 54 Day
  Sex: Female

DRUGS (8)
  1. FILSPARI [Suspect]
     Active Substance: SPARSENTAN
     Indication: Haematuria
     Route: 048
     Dates: start: 20230825
  2. GLIPIZIDE [Concomitant]
     Active Substance: GLIPIZIDE
  3. FUROSEMIDE [Concomitant]
     Active Substance: FUROSEMIDE
  4. PRAVASTATIN SODIUM [Concomitant]
     Active Substance: PRAVASTATIN SODIUM
  5. MAGNESIUM [Concomitant]
     Active Substance: MAGNESIUM
  6. Metformin ER Gastric [Concomitant]
  7. TRULICITY [Concomitant]
     Active Substance: DULAGLUTIDE
  8. VITAMINS [Concomitant]
     Active Substance: VITAMINS

REACTIONS (4)
  - Weight decreased [Unknown]
  - Product use in unapproved indication [Unknown]
  - Dizziness [Unknown]
  - Peripheral swelling [Recovered/Resolved]
